FAERS Safety Report 4397620-X (Version None)
Quarter: 2004Q3

REPORT INFORMATION
  Report Type: 
  Country: None (occurrence: None)
  Receive Date: 20040714
  Receipt Date: 20040709
  Transmission Date: 20050211
  Serious: Yes (Other)
  Sender: FDA-Public Use
  Company Number: 001958

PATIENT
  Sex: Female

DRUGS (3)
  1. MEDROXYPROGESTERONE ACETATE [Suspect]
     Dates: start: 19980101
  2. MEDROXYPROGESTERONE ACETATE [Suspect]
     Dates: start: 19980101
  3. PREMPHASE (PREMARIN;CYCRIN 14/14) [Suspect]
     Dates: start: 19980101

REACTIONS (1)
  - BREAST CANCER IN SITU [None]
